FAERS Safety Report 7830667-7 (Version None)
Quarter: 2011Q4

REPORT INFORMATION
  Report Type: 
  Country: None (occurrence: None)
  Receive Date: 20111021
  Receipt Date: 20111017
  Transmission Date: 20120403
  Serious: Yes (Life-Threatening, Hospitalization, Other)
  Sender: FDA-Public Use
  Company Number: FR-PFIZER INC-2011131121

PATIENT
  Age: 36 Year
  Sex: Male

DRUGS (3)
  1. CELEBREX [Suspect]
     Indication: ANKYLOSING SPONDYLITIS
     Dosage: 200 MG, 1X/DAY
     Dates: start: 19900101, end: 20110606
  2. PAROXETINE HCL [Concomitant]
     Dosage: 20 MG, 1X/DAY
  3. OXAZEPAM [Concomitant]
     Dosage: 50 MG, 1X/DAY

REACTIONS (4)
  - SEPTIC SHOCK [None]
  - CARDIAC FAILURE [None]
  - MYOCARDITIS SEPTIC [None]
  - CELLULITIS [None]
